FAERS Safety Report 25064762 (Version 1)
Quarter: 2025Q1

REPORT INFORMATION
  Report Type: Spontaneous
  Country: US (occurrence: US)
  Receive Date: 20250311
  Receipt Date: 20250311
  Transmission Date: 20250409
  Serious: No
  Sender: Unknown Manufacturer
  Company Number: US-NEURELIS-USNEU24000596

PATIENT

DRUGS (9)
  1. VALTOCO [Suspect]
     Active Substance: DIAZEPAM
     Indication: Partial seizures
     Route: 045
     Dates: start: 202209
  2. VALTOCO [Suspect]
     Active Substance: DIAZEPAM
     Dates: start: 20240517
  3. VALTOCO [Suspect]
     Active Substance: DIAZEPAM
     Dates: start: 20240517
  4. LAMOTRIGINE [Concomitant]
     Active Substance: LAMOTRIGINE
     Indication: Product used for unknown indication
     Dosage: 200 MILLIGRAM, QD
     Route: 048
  5. LAMOTRIGINE [Concomitant]
     Active Substance: LAMOTRIGINE
     Dosage: 250 MILLIGRAM, QD, PM
     Route: 048
  6. CLOBAZAM [Concomitant]
     Active Substance: CLOBAZAM
     Indication: Product used for unknown indication
     Route: 048
  7. ETHOSUXIMIDE [Concomitant]
     Active Substance: ETHOSUXIMIDE
     Indication: Product used for unknown indication
  8. LAMICTAL [Concomitant]
     Active Substance: LAMOTRIGINE
     Indication: Product used for unknown indication
     Route: 048
  9. XCOPRI [Concomitant]
     Active Substance: CENOBAMATE
     Indication: Product used for unknown indication
     Route: 048
     Dates: start: 20240603

REACTIONS (2)
  - Drug effect less than expected [Unknown]
  - Off label use [Unknown]
